FAERS Safety Report 10096083 (Version 2)
Quarter: 2015Q2

REPORT INFORMATION
  Report Type: Spontaneous
  Country: US (occurrence: US)
  Receive Date: 20140422
  Receipt Date: 20150602
  Transmission Date: 20150821
  Serious: Yes (Hospitalization)
  Sender: FDA-Public Use
  Company Number: US-BAYER-2014-056504

PATIENT
  Age: 38 Year
  Sex: Female

DRUGS (9)
  1. YASMIN [Suspect]
     Active Substance: DROSPIRENONE\ETHINYL ESTRADIOL
     Dosage: UNK
     Dates: start: 20011228, end: 20030708
  2. IMITREX [Concomitant]
     Active Substance: SUMATRIPTAN\SUMATRIPTAN SUCCINATE
  3. REMERON [Concomitant]
     Active Substance: MIRTAZAPINE
  4. YAZ [Suspect]
     Active Substance: DROSPIRENONE\ETHINYL ESTRADIOL
     Dosage: UNK
     Dates: start: 20011228, end: 20030708
  5. OCELLA [Suspect]
     Active Substance: DROSPIRENONE\ETHINYL ESTRADIOL
     Dosage: UNK
     Dates: start: 20011228, end: 20030708
  6. EXCEDRIN [CAFFEINE,PARACETAMOL] [Concomitant]
  7. GIANVI [Suspect]
     Active Substance: DROSPIRENONE\ETHINYL ESTRADIOL
     Dosage: UNK
     Dates: start: 20011228, end: 20030708
  8. MAXALT [Concomitant]
     Active Substance: RIZATRIPTAN BENZOATE
  9. DEPAKOTE [Concomitant]
     Active Substance: DIVALPROEX SODIUM

REACTIONS (5)
  - Emotional distress [None]
  - Lacunar infarction [None]
  - Cerebrovascular accident [None]
  - Injury [None]
  - Pain [None]

NARRATIVE: CASE EVENT DATE: 20030708
